FAERS Safety Report 18945505 (Version 3)
Quarter: 2021Q2

REPORT INFORMATION
  Report Type: Spontaneous
  Country: GB (occurrence: GB)
  Receive Date: 20210226
  Receipt Date: 20210518
  Transmission Date: 20210717
  Serious: Yes (Other)
  Sender: FDA-Public Use
  Company Number: GB-NOVOPROD-790043

PATIENT
  Age: 66 Year
  Sex: Female

DRUGS (9)
  1. NOVORAPID [Suspect]
     Active Substance: INSULIN ASPART
     Dosage: 4.95 IU
     Route: 058
     Dates: start: 20210215
  2. NOVORAPID [Suspect]
     Active Substance: INSULIN ASPART
     Dosage: 0.25 IU
     Route: 058
     Dates: start: 20210216
  3. NOVORAPID [Suspect]
     Active Substance: INSULIN ASPART
     Dosage: 5.35 IU
     Route: 058
     Dates: start: 20210215
  4. NOVORAPID [Suspect]
     Active Substance: INSULIN ASPART
     Dosage: 2.75 IU
     Route: 058
     Dates: start: 20210216
  5. NOVORAPID [Suspect]
     Active Substance: INSULIN ASPART
     Indication: DIABETES MELLITUS
     Dosage: UNK
     Route: 058
  6. NOVORAPID [Suspect]
     Active Substance: INSULIN ASPART
     Dosage: 3.7 IU
     Route: 058
     Dates: start: 20210215
  7. NOVORAPID [Suspect]
     Active Substance: INSULIN ASPART
     Dosage: 9 IU
     Route: 058
     Dates: start: 20210216
  8. NOVORAPID [Suspect]
     Active Substance: INSULIN ASPART
     Dosage: 5.05 IU
     Route: 058
     Dates: start: 20210216
  9. NOVORAPID [Suspect]
     Active Substance: INSULIN ASPART
     Dosage: 4.9 IU
     Route: 058
     Dates: start: 20210216

REACTIONS (2)
  - Diabetic ketoacidosis [Unknown]
  - Hypoglycaemia [Recovered/Resolved]

NARRATIVE: CASE EVENT DATE: 20210215
